FAERS Safety Report 18103451 (Version 1)
Quarter: 2020Q3

REPORT INFORMATION
  Report Type: Spontaneous
  Country: US (occurrence: US)
  Receive Date: 20200803
  Receipt Date: 20200803
  Transmission Date: 20201103
  Serious: Yes (Hospitalization, Other)
  Sender: FDA-Public Use
  Company Number: US-GILEAD-2020-0487735

PATIENT
  Age: 63 Year
  Sex: Male
  Weight: 134 kg

DRUGS (9)
  1. DIPHENHYDRAMINE. [Concomitant]
     Active Substance: DIPHENHYDRAMINE
  2. DEXAMETHASONE. [Concomitant]
     Active Substance: DEXAMETHASONE
  3. METRONIDAZOLE. [Concomitant]
     Active Substance: METRONIDAZOLE
  4. REMDESIVIR. [Suspect]
     Active Substance: REMDESIVIR
     Indication: COVID-19
     Dosage: 100 MG, QD
     Route: 042
     Dates: start: 20200727, end: 20200728
  5. SENNOSIDE A [Concomitant]
     Active Substance: SENNOSIDE A
  6. CEFEPIME [Concomitant]
     Active Substance: CEFEPIME HYDROCHLORIDE
  7. VANCOMYCIN [Concomitant]
     Active Substance: VANCOMYCIN
  8. TOCILIZUMAB. [Concomitant]
     Active Substance: TOCILIZUMAB
  9. OLANZAPINE. [Concomitant]
     Active Substance: OLANZAPINE

REACTIONS (3)
  - Acute kidney injury [Unknown]
  - Cardiac arrest [Unknown]
  - Transaminases increased [Unknown]

NARRATIVE: CASE EVENT DATE: 20200728
